FAERS Safety Report 8117299-0 (Version None)
Quarter: 2012Q1

REPORT INFORMATION
  Report Type: 
  Country: None (occurrence: None)
  Receive Date: 20120206
  Receipt Date: 20120125
  Transmission Date: 20120608
  Serious: Yes (Other)
  Sender: FDA-Public Use
  Company Number: US-ELI_LILLY_AND_COMPANY-US201201000421

PATIENT
  Sex: Female
  Weight: 86.168 kg

DRUGS (5)
  1. PHENERGAN [Concomitant]
     Indication: VOMITING
     Dosage: UNK, PRN
     Dates: end: 20110914
  2. BYETTA [Suspect]
     Dosage: 5 UG, UNKNOWN
     Route: 058
     Dates: start: 20100721, end: 20100806
  3. BYETTA [Suspect]
     Indication: TYPE 2 DIABETES MELLITUS
     Dosage: UNK, UNKNOWN
     Route: 058
  4. PRILOSEC [Concomitant]
     Indication: GASTROOESOPHAGEAL REFLUX DISEASE
     Dosage: 20 DF, UNKNOWN
     Dates: end: 20101029
  5. METFORMIN HCL [Concomitant]
     Dosage: 1000 DF, BID
     Dates: end: 20101029

REACTIONS (2)
  - PANCREATIC CARCINOMA [None]
  - JAUNDICE [None]
